FAERS Safety Report 8821113 (Version 3)
Quarter: 2016Q3

REPORT INFORMATION
  Report Type: Spontaneous
  Country: JP (occurrence: JP)
  Receive Date: 20121002
  Receipt Date: 20160909
  Transmission Date: 20161109
  Serious: Yes (Hospitalization, Other)
  Sender: FDA-Public Use
  Company Number: JP-GLAXOSMITHKLINE-B0833967A

PATIENT
  Age: 9 Year
  Sex: Male
  Weight: 27 kg

DRUGS (16)
  1. MERCAZOLE [Concomitant]
     Active Substance: CARBIMAZOLE
     Indication: HYPERTHYROIDISM
     Route: 048
  2. LEVETIRACETAM. [Suspect]
     Active Substance: LEVETIRACETAM
     Dosage: 500 MG, U
     Route: 048
  3. MYSTAN [Concomitant]
     Active Substance: CLOBAZAM
     Route: 048
  4. LAMOTRIGINE. [Suspect]
     Active Substance: LAMOTRIGINE
     Indication: EPILEPSY
     Route: 048
     Dates: start: 20100723, end: 20101007
  5. LAMOTRIGINE. [Suspect]
     Active Substance: LAMOTRIGINE
     Route: 048
     Dates: start: 20101008, end: 20101226
  6. LEVETIRACETAM. [Suspect]
     Active Substance: LEVETIRACETAM
     Dosage: 250 MG, U
     Route: 048
  7. MYSTAN [Concomitant]
     Active Substance: CLOBAZAM
     Route: 048
  8. LAMOTRIGINE. [Suspect]
     Active Substance: LAMOTRIGINE
     Route: 048
  9. LEVETIRACETAM. [Suspect]
     Active Substance: LEVETIRACETAM
     Dosage: 750 MG, U
     Route: 048
  10. EXCEGRAN [Concomitant]
     Active Substance: ZONISAMIDE
     Indication: EPILEPSY
     Route: 048
  11. LAMOTRIGINE. [Suspect]
     Active Substance: LAMOTRIGINE
     Route: 048
     Dates: start: 20110107
  12. DIAZEPAM. [Concomitant]
     Active Substance: DIAZEPAM
     Indication: INITIAL INSOMNIA
     Dosage: UNK
  13. LAMOTRIGINE. [Suspect]
     Active Substance: LAMOTRIGINE
     Route: 048
     Dates: start: 20101227, end: 20110106
  14. LEVETIRACETAM. [Suspect]
     Active Substance: LEVETIRACETAM
     Dosage: 125 MG, U
     Route: 048
  15. SELENICA-R [Concomitant]
     Active Substance: VALPROATE SODIUM
     Indication: EPILEPSY
     Route: 048
  16. MYSTAN [Concomitant]
     Active Substance: CLOBAZAM
     Indication: EPILEPSY
     Route: 048

REACTIONS (15)
  - Abasia [Recovering/Resolving]
  - Feeding disorder [Unknown]
  - Status epilepticus [Unknown]
  - Lethargy [Recovering/Resolving]
  - Poor quality sleep [Unknown]
  - Somnolence [Unknown]
  - Sleep phase rhythm disturbance [Unknown]
  - Initial insomnia [Unknown]
  - Hypotonia [Recovering/Resolving]
  - Abnormal behaviour [Unknown]
  - Gait disturbance [Recovering/Resolving]
  - Tonic convulsion [Recovering/Resolving]
  - Asterixis [Recovering/Resolving]
  - Electroencephalogram abnormal [Recovering/Resolving]
  - Poverty of speech [Unknown]

NARRATIVE: CASE EVENT DATE: 20101022
